FAERS Safety Report 8367428-9 (Version None)
Quarter: 2012Q2

REPORT INFORMATION
  Report Type: 
  Country: None (occurrence: None)
  Receive Date: 20120517
  Receipt Date: 20120322
  Transmission Date: 20120825
  Serious: No
  Sender: FDA-Public Use
  Company Number: US-GLAXOSMITHKLINE-A0959379A

PATIENT
  Age: 64 Year
  Sex: Female
  Weight: 43.6 kg

DRUGS (22)
  1. CLONIDINE [Concomitant]
  2. ASCORBIC ACID [Concomitant]
  3. KEPPRA [Concomitant]
  4. OXYCODONE HCL [Concomitant]
  5. SODIUM CHLORIDE [Concomitant]
  6. SYNTHROID [Concomitant]
  7. VOTRIENT [Suspect]
     Indication: RENAL CELL CARCINOMA
     Dosage: 800MG PER DAY
     Route: 048
     Dates: start: 20111115, end: 20120126
  8. PROZAC [Concomitant]
  9. FLUTICASONE FUROATE [Concomitant]
  10. LORAZEPAM [Concomitant]
  11. OXYCONTIN [Concomitant]
  12. NORVASC [Concomitant]
  13. MULTI-VITAMIN [Concomitant]
  14. FERROUS SULFATE TAB [Concomitant]
  15. SODIUM CHLORIDE [Concomitant]
  16. DEXAMETHASONE [Concomitant]
  17. AMLODIPINE BESYLATE [Concomitant]
  18. UNKNOWN [Concomitant]
  19. AMBIEN [Concomitant]
  20. MEGACE [Concomitant]
  21. ATENOLOL [Concomitant]
  22. WELLBUTRIN [Concomitant]

REACTIONS (2)
  - HOSPICE CARE [None]
  - ELECTROCARDIOGRAM ABNORMAL [None]
